FAERS Safety Report 8797174 (Version 1)
Quarter: 2012Q4

REPORT INFORMATION
  Report Type: 
  Country: US (occurrence: US)
  Receive Date: 20120920
  Receipt Date: 20120920
  Transmission Date: 20130627
  Serious: Yes (Other)
  Sender: FDA-Public Use
  Company Number: US-JNJFOC-20120906843

PATIENT
  Age: 59 Year
  Sex: Female
  Weight: 58.06 kg

DRUGS (2)
  1. BENADRYL [Suspect]
     Indication: PREMEDICATION
     Route: 065
     Dates: start: 20120312
  2. METHOTREXATE [Concomitant]
     Indication: RHEUMATOID ARTHRITIS
     Route: 065
     Dates: start: 2010

REACTIONS (4)
  - Loss of consciousness [Recovered/Resolved]
  - Latent tuberculosis [Not Recovered/Not Resolved]
  - Pneumonia [Recovered/Resolved]
  - Productive cough [Recovered/Resolved]
